FAERS Safety Report 24035908 (Version 2)
Quarter: 2024Q3

REPORT INFORMATION
  Report Type: Spontaneous
  Country: US (occurrence: US)
  Receive Date: 20240701
  Receipt Date: 20240902
  Transmission Date: 20241017
  Serious: Yes (Other)
  Sender: NOVARTIS
  Company Number: US-002147023-NVSC2024US132566

PATIENT
  Sex: Female
  Weight: 124 kg

DRUGS (2)
  1. LETROZOLE [Suspect]
     Active Substance: LETROZOLE
     Indication: Breast cancer
     Dosage: UNK
     Route: 065
  2. IBRANCE [Suspect]
     Active Substance: PALBOCICLIB
     Indication: Breast cancer metastatic
     Dosage: 75 MG (TAKES FOR 21 DAYS AND OFF 7 DAYS STARTS BACK AGAIN)
     Route: 065

REACTIONS (9)
  - Metastases to lung [Unknown]
  - Weight decreased [Unknown]
  - White blood cell disorder [Unknown]
  - COVID-19 [Unknown]
  - Abdominal pain upper [Unknown]
  - Vision blurred [Unknown]
  - Alopecia [Unknown]
  - Product storage error [Unknown]
  - Suspected product quality issue [Unknown]
